FAERS Safety Report 19940535 (Version 1)
Quarter: 2021Q4

REPORT INFORMATION
  Report Type: Spontaneous
  Country: US (occurrence: US)
  Receive Date: 20211011
  Receipt Date: 20211011
  Transmission Date: 20220303
  Serious: Yes (Death, Other)
  Sender: FDA-Public Use
  Company Number: US-SA-SAC20210903000269

PATIENT
  Age: 57 Year
  Sex: Female

DRUGS (17)
  1. AUBAGIO [Suspect]
     Active Substance: TERIFLUNOMIDE
     Indication: Multiple sclerosis
     Dosage: 7 MG, QD
     Route: 048
     Dates: start: 20210314, end: 20210828
  2. TYLENOL [Concomitant]
     Active Substance: ACETAMINOPHEN
  3. ASPIRIN [Concomitant]
     Active Substance: ASPIRIN
  4. DULCOLAX (BISACODYL) [Concomitant]
     Active Substance: BISACODYL
  5. CELEBREX [Concomitant]
     Active Substance: CELECOXIB
  6. VIT D [VITAMIN D NOS] [Concomitant]
  7. COLACE [Concomitant]
     Active Substance: DOCUSATE SODIUM
  8. CYMBALTA [Concomitant]
     Active Substance: DULOXETINE HYDROCHLORIDE
  9. LEXAPRO [Concomitant]
     Active Substance: ESCITALOPRAM OXALATE
  10. GABAPENTIN [Concomitant]
     Active Substance: GABAPENTIN
  11. SYNTHROID [Concomitant]
     Active Substance: LEVOTHYROXINE SODIUM
  12. MAGNESIUM [Concomitant]
     Active Substance: MAGNESIUM
  13. ROBITUSSIN (GUAIFENESIN) [Concomitant]
     Active Substance: GUAIFENESIN
  14. MELATONIN [Concomitant]
     Active Substance: MELATONIN
  15. TORADOL [Concomitant]
     Active Substance: KETOROLAC TROMETHAMINE
  16. ATIVAN [Concomitant]
     Active Substance: LORAZEPAM
  17. TOPAMAX [Concomitant]
     Active Substance: TOPIRAMATE

REACTIONS (2)
  - Progressive multiple sclerosis [Fatal]
  - Paraparesis [Fatal]

NARRATIVE: CASE EVENT DATE: 20210828
